FAERS Safety Report 6469923-6 (Version None)
Quarter: 2009Q4

REPORT INFORMATION
  Report Type: 
  Country: None (occurrence: None)
  Receive Date: 20091203
  Receipt Date: 20080512
  Transmission Date: 20100525
  Serious: No
  Sender: FDA-Public Use
  Company Number: US-ELI_LILLY_AND_COMPANY-US200711002152

PATIENT
  Age: 40 Year
  Sex: Female

DRUGS (1)
  1. CYMBALTA [Suspect]
     Indication: DEPRESSION

REACTIONS (8)
  - ABDOMINAL PAIN [None]
  - DEPRESSION [None]
  - HEPATIC ENZYME ABNORMAL [None]
  - INFECTION [None]
  - INFLUENZA LIKE ILLNESS [None]
  - INTENTIONAL SELF-INJURY [None]
  - MALAISE [None]
  - NAUSEA [None]
